FAERS Safety Report 9470043 (Version 1)
Quarter: 2013Q3

REPORT INFORMATION
  Report Type: Spontaneous
  Country: US (occurrence: US)
  Receive Date: 20130822
  Receipt Date: 20130822
  Transmission Date: 20140515
  Serious: Yes (Other)
  Sender: FDA-Public Use
  Company Number: US-UCBSA-095328

PATIENT
  Sex: Female

DRUGS (1)
  1. CIMZIA [Suspect]
     Indication: RHEUMATOID ARTHRITIS
     Dosage: 400 MG AT WEEK 0, 2 + 4; THEN 400 MG EVERY 4 WEEKS
     Route: 058
     Dates: start: 20091104

REACTIONS (1)
  - Post procedural infection [Not Recovered/Not Resolved]
